FAERS Safety Report 11692444 (Version 5)
Quarter: 2017Q1

REPORT INFORMATION
  Report Type: Spontaneous
  Country: US (occurrence: US)
  Receive Date: 20151103
  Receipt Date: 20170130
  Transmission Date: 20170428
  Serious: Yes (Other)
  Sender: FDA-Public Use
  Company Number: PHEH2015US022304

PATIENT
  Sex: Female

DRUGS (3)
  1. ONDANSETRON HYDROCHLORIDE. [Suspect]
     Active Substance: ONDANSETRON HYDROCHLORIDE
     Indication: PRODUCT USED FOR UNKNOWN INDICATION
     Route: 065
  2. ZOFRAN ODT [Suspect]
     Active Substance: ONDANSETRON HYDROCHLORIDE
     Indication: VOMITING IN PREGNANCY
     Dosage: 1 DF, Q4H
     Route: 048
     Dates: start: 20130211
  3. ONDANSETRON HYDROCHLORIDE. [Suspect]
     Active Substance: ONDANSETRON HYDROCHLORIDE
     Indication: VOMITING IN PREGNANCY
     Dosage: 1 DF, AS NEEDED (PRN)
     Route: 048

REACTIONS (14)
  - Ovarian cyst [Unknown]
  - Vaginal discharge [Unknown]
  - Product use issue [Unknown]
  - Urinary tract infection [Unknown]
  - Pain [Unknown]
  - Emotional distress [Unknown]
  - Injury [Unknown]
  - Anaemia [Unknown]
  - Anxiety [Unknown]
  - Hypokalaemia [Unknown]
  - Maternal exposure during pregnancy [Unknown]
  - Trichomoniasis [Unknown]
  - Gestational hypertension [Unknown]
  - Dehydration [Unknown]
